FAERS Safety Report 7468385-X (Version None)
Quarter: 2011Q2

REPORT INFORMATION
  Report Type: 
  Country: None (occurrence: None)
  Receive Date: 20110509
  Receipt Date: 20110426
  Transmission Date: 20111010
  Serious: Yes (Death)
  Sender: FDA-Public Use
  Company Number: JP-PFIZER INC-2011077241

PATIENT
  Age: 69 Year
  Sex: Male
  Weight: 52 kg

DRUGS (5)
  1. ALOXI [Concomitant]
     Indication: PREMEDICATION
     Dosage: 0.75 MG, UNK
     Route: 041
     Dates: start: 20110326, end: 20110326
  2. PARAPLATIN [Suspect]
     Indication: SMALL CELL LUNG CANCER STAGE UNSPECIFIED
     Dosage: 350 MG/BODY (245 MG/M2)
     Route: 041
     Dates: start: 20110326, end: 20110326
  3. CAMPTOSAR [Suspect]
     Indication: SMALL CELL LUNG CANCER STAGE UNSPECIFIED
     Dosage: 70 MG/BODY (50 MG/M2)
     Route: 041
     Dates: start: 20110326, end: 20110326
  4. EMEND [Concomitant]
     Indication: PREMEDICATION
     Dosage: 80 MG, UNK
     Route: 048
     Dates: start: 20110326, end: 20110327
  5. DEXAMETHASONE SODIUM PHOSPHATE [Concomitant]
     Indication: PREMEDICATION
     Dosage: 3.3 MG, UNK
     Route: 041
     Dates: start: 20110326, end: 20110326

REACTIONS (5)
  - THROMBOCYTOPENIA [None]
  - NEUTROPENIA [None]
  - SEPTIC SHOCK [None]
  - DECREASED APPETITE [None]
  - LEUKOPENIA [None]
